FAERS Safety Report 8506076-4 (Version None)
Quarter: 2012Q3

REPORT INFORMATION
  Report Type: 
  Country: None (occurrence: None)
  Receive Date: 20120712
  Receipt Date: 20120703
  Transmission Date: 20120928
  Serious: Yes (Other)
  Sender: FDA-Public Use
  Company Number: BR-ASTRAZENECA-2012SE45462

PATIENT
  Age: 33 Year
  Sex: Male
  Weight: 61 kg

DRUGS (3)
  1. MULTI-VITAMIN [Concomitant]
     Route: 048
  2. METOPROLOL SUCCINATE [Suspect]
     Indication: TACHYCARDIA
     Route: 048
     Dates: start: 20120201
  3. BETAHISTINE HYDROCHLORID [Suspect]
     Indication: LABYRINTHITIS
     Route: 048

REACTIONS (4)
  - LABYRINTHITIS [None]
  - PALPITATIONS [None]
  - DIARRHOEA [None]
  - DEHYDRATION [None]
